FAERS Safety Report 10477716 (Version 3)
Quarter: 2014Q4

REPORT INFORMATION
  Report Type: Report from Study
  Country: CN (occurrence: CN)
  Receive Date: 20140926
  Receipt Date: 20141023
  Transmission Date: 20150528
  Serious: Yes (Hospitalization)
  Sender: FDA-Public Use
  Company Number: CN-BAYER-2014-132468

PATIENT
  Age: 73 Year
  Sex: Male

DRUGS (5)
  1. NEXAVAR [Suspect]
     Active Substance: SORAFENIB
     Indication: RENAL CELL CARCINOMA STAGE IV
     Dosage: 400 MG, BID
     Dates: start: 20140925, end: 20141003
  2. NEXAVAR [Suspect]
     Active Substance: SORAFENIB
     Indication: METASTASES TO MUSCLE
     Dosage: 400 MG, BID
     Dates: start: 20140915, end: 20140916
  3. NEXAVAR [Suspect]
     Active Substance: SORAFENIB
     Indication: RENAL CELL CARCINOMA STAGE IV
     Dosage: 200 MG, QD
     Dates: start: 20141005, end: 20141006
  4. NEXAVAR [Suspect]
     Active Substance: SORAFENIB
     Indication: RENAL CELL CARCINOMA STAGE IV
     Dosage: 400 MG, BID
     Dates: start: 20141007, end: 20141010
  5. NEXAVAR [Suspect]
     Active Substance: SORAFENIB
     Indication: RENAL CELL CARCINOMA STAGE IV
     Dosage: 400 MG, BID
     Dates: start: 20140818, end: 20140911

REACTIONS (4)
  - Palmar-plantar erythrodysaesthesia syndrome [None]
  - Rash [None]
  - Blood pressure increased [None]
  - Faeces discoloured [None]

NARRATIVE: CASE EVENT DATE: 20140901
